FAERS Safety Report 7363915-0 (Version None)
Quarter: 2011Q1

REPORT INFORMATION
  Report Type: 
  Country: None (occurrence: None)
  Receive Date: 20110321
  Receipt Date: 20110106
  Transmission Date: 20110831
  Serious: No
  Sender: FDA-Public Use
  Company Number: US-BAYER-2011-003256

PATIENT
  Sex: Female
  Weight: 10 kg

DRUGS (2)
  1. ALEVE (CAPLET) [Suspect]
     Dosage: CHILD MAY HAVE INGESTED SOME GEL CAPS (LESS THAN 5); BOTTLE COUNT 40CT
     Route: 048
     Dates: start: 20110106
  2. UNCODEABLE ^UNCLASSIFIABLE^ [Concomitant]
     Indication: COUGH
     Dosage: UNK
     Dates: start: 20110106

REACTIONS (1)
  - NO ADVERSE EVENT [None]
